FAERS Safety Report 7316092-6 (Version None)
Quarter: 2011Q1

REPORT INFORMATION
  Report Type: 
  Country: None (occurrence: None)
  Receive Date: 20110225
  Receipt Date: 20110216
  Transmission Date: 20110831
  Serious: Yes (Other)
  Sender: FDA-Public Use
  Company Number: DE-ELI_LILLY_AND_COMPANY-DE201102004305

PATIENT
  Age: 65 Year
  Sex: Female

DRUGS (2)
  1. HUMALOG [Suspect]
  2. HUMULIN R [Suspect]
     Indication: DIABETES MELLITUS
     Route: 058

REACTIONS (3)
  - MALAISE [None]
  - HEADACHE [None]
  - BLOOD GLUCOSE INCREASED [None]
